FAERS Safety Report 4389695-9 (Version None)
Quarter: 2004Q2

REPORT INFORMATION
  Report Type: 
  Country: None (occurrence: None)
  Receive Date: 20040629
  Receipt Date: 20030930
  Transmission Date: 20050107
  Serious: Yes (Hospitalization)
  Sender: FDA-Public Use
  Company Number: US-JNJFOC-20031000374

PATIENT
  Sex: Female

DRUGS (1)
  1. DURAGESIC [Suspect]
     Indication: PAIN
     Dosage: 1 IN 72 HOUR, TRANSDERMAL
     Route: 062

REACTIONS (2)
  - MEDICATION ERROR [None]
  - RESPIRATORY DEPRESSION [None]
